FAERS Safety Report 6295454-2 (Version None)
Quarter: 2009Q3

REPORT INFORMATION
  Report Type: 
  Country: None (occurrence: None)
  Receive Date: 20090730
  Receipt Date: 20090720
  Transmission Date: 20100115
  Serious: Yes (Death)
  Sender: FDA-Public Use
  Company Number: 2009-201072-NL

PATIENT
  Age: 73 Year
  Sex: Male

DRUGS (6)
  1. ROCURONIUM BROMIDE [Suspect]
     Indication: MUSCLE RELAXANT THERAPY
     Dosage: INTRAVENOUS BOLUS
     Route: 040
  2. MIDAZOLAM HCL [Concomitant]
  3. METFORMIN [Concomitant]
  4. VERAPAMIL [Concomitant]
  5. LEVOTHYROXINE [Concomitant]
  6. LOSARTAN POTASSIUM [Concomitant]

REACTIONS (3)
  - ANAPHYLACTIC SHOCK [None]
  - CARDIAC ARREST [None]
  - HYPOXIC ENCEPHALOPATHY [None]
